FAERS Safety Report 6003704-2 (Version None)
Quarter: 2008Q4

REPORT INFORMATION
  Report Type: 
  Country: None (occurrence: None)
  Receive Date: 20081212
  Receipt Date: 20081126
  Transmission Date: 20090506
  Serious: Yes (Hospitalization)
  Sender: FDA-Public Use
  Company Number: A-JP2008-22873

PATIENT

DRUGS (2)
  1. TRACLEER [Suspect]
     Indication: PULMONARY HYPERTENSION
     Dosage: ORAL
     Route: 048
     Dates: start: 20050101, end: 20070101
  2. EPOPRPSTENOL(EPOPROSTENOL) [Suspect]

REACTIONS (8)
  - ADRENAL INSUFFICIENCY [None]
  - AUTOIMMUNE DISORDER [None]
  - DECREASED APPETITE [None]
  - GENERALISED OEDEMA [None]
  - HYPONATRAEMIA [None]
  - MALAISE [None]
  - OFF LABEL USE [None]
  - PANCYTOPENIA [None]
